FAERS Safety Report 6183043-X (Version None)
Quarter: 2009Q2

REPORT INFORMATION
  Report Type: 
  Country: None (occurrence: None)
  Receive Date: 20090507
  Receipt Date: 20090504
  Transmission Date: 20091009
  Serious: Yes (Other)
  Sender: FDA-Public Use
  Company Number: US-BRISTOL-MYERS SQUIBB COMPANY-14613996

PATIENT
  Age: 53 Year
  Sex: Male

DRUGS (4)
  1. VIDEX [Suspect]
     Indication: ANTIRETROVIRAL THERAPY
  2. VIREAD [Suspect]
     Indication: ANTIRETROVIRAL THERAPY
  3. ZIAGEN [Suspect]
     Indication: ANTIRETROVIRAL THERAPY
  4. VIRAMUNE [Suspect]
     Indication: ANTIRETROVIRAL THERAPY

REACTIONS (2)
  - EYELID PTOSIS [None]
  - FACIAL WASTING [None]
